FAERS Safety Report 9303082 (Version 1)
Quarter: 2013Q1

REPORT INFORMATION
  Report Type: Spontaneous
  Country: US (occurrence: None)
  Receive Date: 20130107
  Receipt Date: 20130107
  Transmission Date: 20140127
  Serious: Yes (Hospitalization, Disabling, Other)
  Sender: FDA-Public Use
  Company Number: ACO_32662_2012

PATIENT
  Age: 58 Year
  Sex: Male

DRUGS (22)
  1. AMPYRA (DALFAMPRIDINE) TABLET, 10MG [Suspect]
     Indication: PRODUCT USED FOR UNKNOWN INDICATION
     Route: 048
     Dates: start: 2010
  2. INFLUENZA VACCINE (INFLUENZA VACCINE) (INFLUENZA VACCINE) [Suspect]
     Dates: start: 20111005, end: 20111005
  3. NEURONTIN (GABAPENTIN) [Concomitant]
  4. ANTIVERT (MECLOZINE HYDROCHLORIDE) [Concomitant]
  5. LIORESAL (BACLOFEN) [Concomitant]
  6. SYMMETREL (AMANTADINE HYDROCHLORIDE) [Concomitant]
  7. ERYTHROMYCIN (ERYTHROMYCIN) EYE OINTMENT [Concomitant]
  8. COLACE (DOCUSATE SODIUM) [Concomitant]
  9. LORTAB (HYDROCODONE BITARTRATE, PARACETAMOL) [Concomitant]
  10. DESYREL (TRAZODONE HYDROCHLORIDE) [Concomitant]
  11. ASPIRIN (ACETYLSALICYLIC ACID) [Concomitant]
  12. ARMODAFINIL [Concomitant]
  13. LOPROX (CICLOPIROX OLAMINE) CREAM [Concomitant]
  14. AMBIEN (ZOLPIDEM TARTRATE) [Concomitant]
  15. AVONEX (INTERFERON BETA-1A) [Concomitant]
  16. B12 (CYANOCOBALAMIN) [Concomitant]
  17. VITAMIN D (COLECALCIFEROL) [Concomitant]
  18. FISH OIL W/TOCOPHEROL (FISH OIL W/TOCOPHEROL) [Concomitant]
  19. MOTRIN (IBUPROFEN) [Concomitant]
  20. ALPRAZOLAM (ALPRAZOLAM) [Concomitant]
  21. TERBINAFINE (TERBINAFINE) [Concomitant]
  22. ARISTOCORT A (TRIAMCINOLONE ACETONIDE) [Concomitant]

REACTIONS (14)
  - Abasia [None]
  - Paralysis [None]
  - Injection site cellulitis [None]
  - Multiple sclerosis relapse [None]
  - Fall [None]
  - Hypoaesthesia [None]
  - Pollakiuria [None]
  - Urinary hesitation [None]
  - Presbyopia [None]
  - Injection site swelling [None]
  - Injection site erythema [None]
  - Headache [None]
  - Drug effect decreased [None]
  - Blepharitis [None]
